FAERS Safety Report 5324030-0 (Version None)
Quarter: 2007Q2

REPORT INFORMATION
  Report Type: 
  Country: None (occurrence: None)
  Receive Date: 20070509
  Receipt Date: 20070509
  Transmission Date: 20071010
  Serious: Yes (Death)
  Sender: FDA-Public Use
  Company Number: None

PATIENT
  Age: 14 Month
  Sex: Female
  Weight: 9.5 kg

DRUGS (1)
  1. PHENYTOIN [Suspect]
     Indication: CONVULSION
     Dosage: 125 MG TWICE DAILY PO
     Route: 048
     Dates: start: 20061229, end: 20070128

REACTIONS (16)
  - ACUTE HEPATIC FAILURE [None]
  - BRAIN DEATH [None]
  - BRAIN OEDEMA [None]
  - COAGULOPATHY [None]
  - ENCEPHALOPATHY [None]
  - GENERAL PHYSICAL HEALTH DETERIORATION [None]
  - HEPATIC NECROSIS [None]
  - INFLAMMATION [None]
  - MYDRIASIS [None]
  - NECROSIS [None]
  - NERVOUS SYSTEM DISORDER [None]
  - OTITIS MEDIA [None]
  - PUPILLARY REFLEX IMPAIRED [None]
  - PYREXIA [None]
  - RASH [None]
  - SUBARACHNOID HAEMORRHAGE [None]
